FAERS Safety Report 13196623 (Version 1)
Quarter: 2017Q1

REPORT INFORMATION
  Report Type: Spontaneous
  Country: US (occurrence: US)
  Receive Date: 20170207
  Receipt Date: 20170207
  Transmission Date: 20170428
  Serious: Yes (Other)
  Sender: FDA-Public Use
  Company Number: None

PATIENT
  Age: 59 Year
  Sex: Female
  Weight: 110.2 kg

DRUGS (7)
  1. FUROSEMIDE. [Concomitant]
     Active Substance: FUROSEMIDE
  2. METFORMIN [Concomitant]
     Active Substance: METFORMIN HYDROCHLORIDE
  3. KEPPRA [Concomitant]
     Active Substance: LEVETIRACETAM
  4. METOPROLOL. [Concomitant]
     Active Substance: METOPROLOL
  5. VITAMIN D [Concomitant]
     Active Substance: CHOLECALCIFEROL
  6. TECFIDERA [Suspect]
     Active Substance: DIMETHYL FUMARATE
     Indication: MULTIPLE SCLEROSIS
     Dosage: ?          QUANTITY:60 CAPSULE(S);?
     Route: 048
  7. VITAMIN B [Concomitant]
     Active Substance: VITAMIN B

REACTIONS (1)
  - Alopecia [None]

NARRATIVE: CASE EVENT DATE: 20160820
